FAERS Safety Report 21063453 (Version 3)
Quarter: 2022Q3

REPORT INFORMATION
  Report Type: Spontaneous
  Country: TW (occurrence: TW)
  Receive Date: 20220711
  Receipt Date: 20220816
  Transmission Date: 20221026
  Serious: Yes (Other)
  Sender: FDA-Public Use
  Company Number: TW-NOVARTISPH-NVSC2022TW156063

PATIENT
  Age: 43 Year
  Sex: Male

DRUGS (1)
  1. AMOXICILLIN\CLAVULANATE POTASSIUM [Suspect]
     Active Substance: AMOXICILLIN\CLAVULANATE POTASSIUM
     Indication: Sinusitis
     Dosage: 1000 MG, BID
     Route: 048
     Dates: start: 202105

REACTIONS (3)
  - Haemorrhage [Recovered/Resolved]
  - Gastrooesophageal reflux disease [Unknown]
  - Packaging design issue [Recovered/Resolved]

NARRATIVE: CASE EVENT DATE: 20220705
